FAERS Safety Report 16735624 (Version 1)
Quarter: 2019Q3

REPORT INFORMATION
  Report Type: Spontaneous
  Country: HU (occurrence: HU)
  Receive Date: 20190823
  Receipt Date: 20190823
  Transmission Date: 20191005
  Serious: No
  Sender: FDA-Public Use
  Company Number: HU-TEVA-785310ISR

PATIENT
  Sex: Female

DRUGS (1)
  1. INERTA [Suspect]
     Active Substance: ISOTRETINOIN
     Dates: end: 20161212

REACTIONS (2)
  - Rash [Recovered/Resolved]
  - Maternal exposure before pregnancy [Unknown]

NARRATIVE: CASE EVENT DATE: 201612
